FAERS Safety Report 24546782 (Version 1)
Quarter: 2024Q4

REPORT INFORMATION
  Report Type: Report from Study
  Country: US (occurrence: US)
  Receive Date: 20241024
  Receipt Date: 20241024
  Transmission Date: 20250115
  Serious: Yes (Hospitalization)
  Sender: JOHNSON AND JOHNSON
  Company Number: US-JNJFOC-20241055068

PATIENT
  Sex: Female

DRUGS (3)
  1. SPRAVATO [Suspect]
     Active Substance: ESKETAMINE
     Indication: Depression
     Dosage: ^84 MG, 1 TOTAL DOSE^
     Dates: start: 20210702, end: 20210702
  2. SPRAVATO [Suspect]
     Active Substance: ESKETAMINE
     Dosage: ^56 MG, 2 TOTAL DOSES^
     Dates: start: 20210709, end: 20210714
  3. SPRAVATO [Suspect]
     Active Substance: ESKETAMINE
     Dosage: ^84 MG, 35 TOTAL SCORES^
     Dates: start: 20210716, end: 20221111

REACTIONS (1)
  - Injury [Unknown]
